FAERS Safety Report 14368590 (Version 4)
Quarter: 2018Q1

REPORT INFORMATION
  Report Type: Spontaneous
  Country: US (occurrence: US)
  Receive Date: 20180109
  Receipt Date: 20180313
  Transmission Date: 20180509
  Serious: Yes (Hospitalization)
  Sender: FDA-Public Use
  Company Number: US-ACTELION-A-NJ2018-165246

PATIENT
  Age: 50 Year
  Sex: Female
  Weight: 101.59 kg

DRUGS (5)
  1. UPTRAVI [Suspect]
     Active Substance: SELEXIPAG
     Dosage: 1400 MCG, BID
     Route: 048
  2. ADCIRCA [Concomitant]
     Active Substance: TADALAFIL
  3. UPTRAVI [Suspect]
     Active Substance: SELEXIPAG
     Dosage: 600 MCG, BID
     Route: 048
  4. UPTRAVI [Suspect]
     Active Substance: SELEXIPAG
     Indication: PULMONARY ARTERIAL HYPERTENSION
     Dosage: 400 MCG, BID
     Route: 048
  5. TYVASO [Concomitant]
     Active Substance: TREPROSTINIL

REACTIONS (9)
  - Loss of consciousness [Unknown]
  - Dizziness [Unknown]
  - Blood potassium decreased [Unknown]
  - Asthenia [Unknown]
  - Fatigue [Unknown]
  - Urinary incontinence [Unknown]
  - Asthenopia [Unknown]
  - Influenza like illness [Unknown]
  - Headache [Unknown]

NARRATIVE: CASE EVENT DATE: 20171227
